FAERS Safety Report 18072433 (Version 1)
Quarter: 2020Q3

REPORT INFORMATION
  Report Type: Spontaneous
  Country: US (occurrence: US)
  Receive Date: 20200727
  Receipt Date: 20200727
  Transmission Date: 20201103
  Serious: Yes (Hospitalization)
  Sender: FDA-Public Use
  Company Number: None

PATIENT
  Age: 68 Year
  Sex: Male
  Weight: 76 kg

DRUGS (1)
  1. PHENYTOIN (PHENYTOIN 50MG TAB, CHEWABLE) [Suspect]
     Active Substance: PHENYTOIN
     Indication: SEIZURE
     Route: 048
     Dates: start: 20200413, end: 20200428

REACTIONS (4)
  - Dyspnoea [None]
  - Pyrexia [None]
  - Cough [None]
  - Rash [None]

NARRATIVE: CASE EVENT DATE: 20200427
